FAERS Safety Report 4550887-7 (Version None)
Quarter: 2004Q4

REPORT INFORMATION
  Report Type: 
  Country: None (occurrence: None)
  Receive Date: 20041217
  Receipt Date: 20040910
  Transmission Date: 20050328
  Serious: No
  Sender: FDA-Public Use
  Company Number: 2004-BP-08209BP

PATIENT
  Age: 76 Year
  Sex: Male

DRUGS (12)
  1. SPIRIVA [Suspect]
     Indication: CHRONIC OBSTRUCTIVE AIRWAYS DISEASE
     Dosage: 18 MCG (18 MCG, OD), IH
     Route: 055
  2. SPIRIVA [Suspect]
  3. SINGULAIR [Concomitant]
  4. HYZAAR [Concomitant]
  5. PLAVIX [Concomitant]
  6. ZETIA (EZETIMIVE) [Concomitant]
  7. AMBIEN [Concomitant]
  8. ATIVAN [Concomitant]
  9. ZOLOFT [Concomitant]
  10. PRILOSEC [Concomitant]
  11. HYTRIN [Concomitant]
  12. CARBIDOPA W/ LEVODOPA (SINEMET) [Concomitant]

REACTIONS (1)
  - HOARSENESS [None]
